FAERS Safety Report 8170655-7 (Version None)
Quarter: 2012Q1

REPORT INFORMATION
  Report Type: 
  Country: None (occurrence: None)
  Receive Date: 20120228
  Receipt Date: 20120224
  Transmission Date: 20120608
  Serious: Yes (Other)
  Sender: FDA-Public Use
  Company Number: VE-PFIZER INC-2012041759

PATIENT
  Age: 24 Year
  Sex: Female

DRUGS (4)
  1. LEVOTHYROXINE SODIUM [Concomitant]
     Dosage: 0.125 UG, 1X/DAY
     Route: 048
  2. FOLIC ACID [Concomitant]
     Dosage: UNK
     Route: 048
  3. LIPITOR [Suspect]
     Indication: HYPERCHOLESTEROLAEMIA
     Dosage: 40 MG, 1X/DAY
     Route: 048
     Dates: start: 20110601, end: 20110901
  4. IRON [Concomitant]
     Dosage: UNK
     Route: 048

REACTIONS (2)
  - NASAL TURBINATE ABNORMALITY [None]
  - NASAL SEPTUM DISORDER [None]
